FAERS Safety Report 12358402 (Version 2)
Quarter: 2016Q2

REPORT INFORMATION
  Report Type: Spontaneous
  Country: US (occurrence: US)
  Receive Date: 20160512
  Receipt Date: 20160516
  Transmission Date: 20160815
  Serious: Yes (Other)
  Sender: FDA-Public Use
  Company Number: US-PFIZER INC-2016253645

PATIENT
  Age: 18 Year
  Sex: Male

DRUGS (2)
  1. VIAGRA [Suspect]
     Active Substance: SILDENAFIL CITRATE
     Dosage: 25 MG, UNK (25 MG X 30)
  2. VIAGRAX [Suspect]
     Active Substance: UNSPECIFIED INGREDIENT

REACTIONS (6)
  - Prescription drug used without a prescription [None]
  - Myocardial infarction [Unknown]
  - Product counterfeit [Unknown]
  - Erectile dysfunction [None]
  - Intentional product misuse [Unknown]
  - Counterfeit drug administered [Unknown]
